FAERS Safety Report 21162020 (Version 2)
Quarter: 2022Q3

REPORT INFORMATION
  Report Type: Report from Study
  Country: AU (occurrence: AU)
  Receive Date: 20220802
  Receipt Date: 20220908
  Transmission Date: 20221027
  Serious: Yes (Hospitalization, Other)
  Sender: FDA-Public Use
  Company Number: AU-BRISTOL-MYERS SQUIBB COMPANY-2022-080163

PATIENT
  Age: 61 Year
  Sex: Female

DRUGS (2)
  1. IPILIMUMAB [Suspect]
     Active Substance: IPILIMUMAB
     Indication: Uterine leiomyosarcoma
     Dosage: MOST RECENT DOSE WAS ON 08-JUL-2022
     Route: 065
     Dates: start: 20220716
  2. NIVOLUMAB [Suspect]
     Active Substance: NIVOLUMAB
     Indication: Uterine leiomyosarcoma
     Dosage: MOST RECENT DOSE WAS ON 08-JUL-2022
     Route: 065
     Dates: start: 20220716

REACTIONS (1)
  - Febrile neutropenia [Recovered/Resolved]

NARRATIVE: CASE EVENT DATE: 20220718
